FAERS Safety Report 9474842 (Version 1)
Quarter: 2013Q3

REPORT INFORMATION
  Report Type: Report from Study
  Country: BE (occurrence: BE)
  Receive Date: 20130823
  Receipt Date: 20130823
  Transmission Date: 20140515
  Serious: Yes (Hospitalization)
  Sender: FDA-Public Use
  Company Number: PHHY2013BE088545

PATIENT
  Age: 65 Year
  Sex: Female

DRUGS (19)
  1. IRINOTECAN [Suspect]
     Indication: COLORECTAL CANCER METASTATIC
     Dosage: 286 MG, EVERY OTHER WEEK
     Route: 042
     Dates: start: 20130312, end: 20130312
  2. IRINOTECAN [Suspect]
     Dosage: 204 MG, EVERY OTHER WEEK
     Route: 042
     Dates: start: 20130604, end: 20130604
  3. 5 FLUORO URACIL [Suspect]
     Indication: COLORECTAL CANCER METASTATIC
     Dosage: 637 MG, EVERY OTHER WEEK
     Route: 040
     Dates: start: 20130312, end: 20130312
  4. 5 FLUORO URACIL [Suspect]
     Dosage: 3820 MG, EVERY OTHER WEEK
     Route: 042
     Dates: start: 20130312, end: 20130312
  5. 5 FLUORO URACIL [Suspect]
     Dosage: 452 MG, EVERY OTHER WEEK
     Route: 040
     Dates: start: 20130604, end: 20130604
  6. 5 FLUORO URACIL [Suspect]
     Dosage: 2715 MG, EVERY OTHER WEEK
     Route: 042
     Dates: start: 20130604, end: 20130604
  7. AFLIBERCEPT [Suspect]
     Indication: COLORECTAL CANCER METASTATIC
     Dosage: 222 MG, EVERY OTHER WEEK
     Route: 042
     Dates: start: 20130312, end: 20130312
  8. AFLIBERCEPT [Suspect]
     Dosage: 196 MG, EVERY OTHER WEEK
     Route: 042
     Dates: start: 20130604, end: 20130604
  9. LEUCOVORIN [Suspect]
     Indication: COLORECTAL CANCER METASTATIC
     Dosage: 318 MG, EVERY OTHER WEEK
     Route: 042
     Dates: start: 20130312, end: 20130312
  10. LEUCOVORIN [Suspect]
     Dosage: 241 MG, EVERY OTHER WEEK
     Route: 042
     Dates: start: 20130604, end: 20130604
  11. MOVICOL [Concomitant]
     Dates: start: 20130312
  12. FRAXODI [Concomitant]
     Dates: start: 201207
  13. DOMPERIDONE [Concomitant]
     Dates: start: 20130312
  14. PERIOCHIP [Concomitant]
     Dates: start: 20130312
  15. DULCO-LAXO [Concomitant]
     Dates: start: 20130329
  16. DAFLON [Concomitant]
     Dates: start: 20130401
  17. LIDOCAINE [Concomitant]
     Dates: start: 20130401
  18. ZINC SULPHATE [Concomitant]
     Dates: start: 20130401
  19. DAFALGAN [Concomitant]
     Dates: start: 20130422

REACTIONS (4)
  - Gastric perforation [Recovered/Resolved]
  - Pain [Recovered/Resolved]
  - Diarrhoea [Recovered/Resolved]
  - Pyrexia [Not Recovered/Not Resolved]
